FAERS Safety Report 7370029-2 (Version None)
Quarter: 2011Q1

REPORT INFORMATION
  Report Type: 
  Country: None (occurrence: None)
  Receive Date: 20110323
  Receipt Date: 20110316
  Transmission Date: 20110831
  Serious: Yes (Other)
  Sender: FDA-Public Use
  Company Number: JP-ASTRAZENECA-2011SE15317

PATIENT
  Age: 37 Year
  Sex: Female

DRUGS (3)
  1. PREDONINE [Concomitant]
     Dosage: NUMBER OF SEPARATE DOSAGES UNKNOWN
     Route: 048
     Dates: end: 20110309
  2. SYMBICORT [Suspect]
     Indication: ASTHMA
     Dosage: DOSE UNKNOWN
     Route: 055
     Dates: start: 20110307, end: 20110309
  3. KIPRES [Concomitant]
     Indication: ASTHMA
     Route: 048
     Dates: end: 20110309

REACTIONS (1)
  - ERYTHEMA MULTIFORME [None]
